FAERS Safety Report 15507303 (Version 3)
Quarter: 2019Q2

REPORT INFORMATION
  Report Type: Spontaneous
  Country: US (occurrence: US)
  Receive Date: 20181016
  Receipt Date: 20190403
  Transmission Date: 20190711
  Serious: No
  Sender: FDA-Public Use
  Company Number: US-PFIZER INC-2018419132

PATIENT
  Age: 53 Year
  Sex: Female
  Weight: 72.56 kg

DRUGS (1)
  1. XELJANZ XR [Suspect]
     Active Substance: TOFACITINIB CITRATE
     Indication: RHEUMATOID ARTHRITIS
     Dosage: 11 MG, DAILY
     Route: 048
     Dates: start: 20180414

REACTIONS (6)
  - Nasal congestion [Unknown]
  - Bronchitis [Unknown]
  - Herpes zoster [Unknown]
  - Malaise [Unknown]
  - Diarrhoea [Unknown]
  - Blood pressure increased [Unknown]
